FAERS Safety Report 8255328-4 (Version None)
Quarter: 2012Q2

REPORT INFORMATION
  Report Type: 
  Country: None (occurrence: None)
  Receive Date: 20120403
  Receipt Date: 20120326
  Transmission Date: 20120825
  Serious: Yes (Hospitalization, Other)
  Sender: FDA-Public Use
  Company Number: DE-JNJFOC-20120203810

PATIENT
  Sex: Male
  Weight: 82.4 kg

DRUGS (12)
  1. RISPERDAL [Suspect]
     Indication: HALLUCINATION, AUDITORY
     Route: 048
     Dates: start: 20120110, end: 20120312
  2. LEVOTHYROXINE SODIUM [Concomitant]
     Route: 048
  3. ERGENYL CHRONO [Concomitant]
     Route: 048
  4. PANTOPRAZOLE [Concomitant]
     Route: 048
  5. TAMSULOSIN HCL [Concomitant]
     Route: 048
  6. RISPERDAL [Suspect]
     Indication: HALLUCINATION, VISUAL
     Route: 048
     Dates: start: 20120110, end: 20120312
  7. DOMINAL FORTE [Concomitant]
     Route: 048
  8. HALOPERIDOL [Suspect]
     Indication: HALLUCINATION, VISUAL
     Route: 048
     Dates: start: 20111128, end: 20120202
  9. HALOPERIDOL [Suspect]
     Indication: DEPRESSION
     Route: 048
     Dates: start: 20111128, end: 20120202
  10. HALOPERIDOL [Suspect]
     Indication: HALLUCINATION, AUDITORY
     Route: 048
     Dates: start: 20111128, end: 20120202
  11. RISPERDAL [Suspect]
     Indication: DEPRESSION
     Route: 048
     Dates: start: 20120110, end: 20120312
  12. LORAZEPAM [Concomitant]
     Route: 048

REACTIONS (1)
  - DEEP VEIN THROMBOSIS [None]
